FAERS Safety Report 9218107 (Version 2)
Quarter: 2013Q2

REPORT INFORMATION
  Report Type: Spontaneous
  Country: US (occurrence: US)
  Receive Date: 20130408
  Receipt Date: 20130425
  Transmission Date: 20140414
  Serious: Yes (Death, Other)
  Sender: FDA-Public Use
  Company Number: US-BAXTER-2013BAX012294

PATIENT
  Sex: Male

DRUGS (2)
  1. DIANEAL LOW CALCIUM (ULTRABAG) [Suspect]
     Indication: PERITONEAL DIALYSIS
     Route: 033
     Dates: start: 2010
  2. DIANEAL LOW CALCIUM (ULTRABAG) [Suspect]
     Indication: PERITONEAL DIALYSIS
     Route: 033
     Dates: start: 2010

REACTIONS (9)
  - Therapy cessation [Fatal]
  - Coma [Unknown]
  - Laryngeal cancer [Unknown]
  - Bone cancer metastatic [Not Recovered/Not Resolved]
  - Rib fracture [Unknown]
  - Confusional state [Not Recovered/Not Resolved]
  - Kidney enlargement [Unknown]
  - Hypophagia [Unknown]
  - Pain [Unknown]
